FAERS Safety Report 25366325 (Version 2)
Quarter: 2025Q2

REPORT INFORMATION
  Report Type: Report from Study
  Country: JP (occurrence: JP)
  Receive Date: 20250528
  Receipt Date: 20250615
  Transmission Date: 20250716
  Serious: Yes (Other)
  Sender: ROCHE
  Company Number: JP-ROCHE-10000288355

PATIENT

DRUGS (8)
  1. ATEZOLIZUMAB [Suspect]
     Active Substance: ATEZOLIZUMAB
     Indication: Rheumatic disorder
     Route: 065
  2. IPILIMUMAB [Suspect]
     Active Substance: IPILIMUMAB
     Indication: Rheumatic disorder
     Route: 065
  3. TREMELIMUMAB [Suspect]
     Active Substance: TREMELIMUMAB
     Indication: Rheumatic disorder
     Route: 065
  4. NIVOLUMAB [Suspect]
     Active Substance: NIVOLUMAB
     Indication: Rheumatic disorder
     Route: 065
  5. PEMBROLIZUMAB [Suspect]
     Active Substance: PEMBROLIZUMAB
     Indication: Rheumatic disorder
     Route: 065
  6. CEMIPLIMAB [Suspect]
     Active Substance: CEMIPLIMAB
     Indication: Rheumatic disorder
     Route: 065
  7. DURVALUMAB [Suspect]
     Active Substance: DURVALUMAB
     Indication: Rheumatic disorder
     Route: 065
  8. AVELUMAB [Suspect]
     Active Substance: AVELUMAB
     Indication: Rheumatic disorder
     Route: 065

REACTIONS (24)
  - Myositis [Unknown]
  - Arthritis [Unknown]
  - Polymyalgia rheumatica [Unknown]
  - Arthralgia [Unknown]
  - Raynaud^s phenomenon [Unknown]
  - Vasculitis [Unknown]
  - Sicca syndrome [Unknown]
  - Psoriatic arthropathy [Unknown]
  - Systemic lupus erythematosus [Unknown]
  - Rheumatoid arthritis [Unknown]
  - Hepatobiliary disease [Unknown]
  - Colitis [Unknown]
  - Skin disorder [Unknown]
  - Endocrine disorder [Unknown]
  - Nervous system disorder [Unknown]
  - Cardiovascular disorder [Unknown]
  - Cytokine release syndrome [Unknown]
  - Haemophagocytic lymphohistiocytosis [Unknown]
  - Lung disorder [Unknown]
  - Blood disorder [Unknown]
  - Gastrointestinal disorder [Unknown]
  - Renal disorder [Unknown]
  - Pancreatic disorder [Unknown]
  - Lymphadenitis [Unknown]
